FAERS Safety Report 10160542 (Version 3)
Quarter: 2015Q2

REPORT INFORMATION
  Report Type: Report from Study
  Country: DE (occurrence: DE)
  Receive Date: 20140508
  Receipt Date: 20150627
  Transmission Date: 20150821
  Serious: Yes (Hospitalization)
  Sender: FDA-Public Use
  Company Number: PHHO2014DE006511

PATIENT
  Age: 50 Year
  Sex: Female
  Weight: 99 kg

DRUGS (9)
  1. FTY [Suspect]
     Active Substance: FINGOLIMOD HYDROCHLORIDE
     Dosage: 0.5 MG, UNK
     Route: 048
     Dates: start: 20140318
  2. SIRDALUD [Concomitant]
     Active Substance: TIZANIDINE
     Indication: PAIN
     Dosage: 2 MG, UNK
     Route: 065
     Dates: start: 201402
  3. VIGANTOLETTEN [Concomitant]
     Active Substance: CHOLECALCIFEROL
     Indication: PROPHYLAXIS
     Dosage: 1000 MG, UNK
     Route: 065
     Dates: start: 201307
  4. CORTISON [Suspect]
     Active Substance: CORTISONE ACETATE
     Indication: PRODUCT USED FOR UNKNOWN INDICATION
     Dosage: UNK
     Route: 065
  5. CITALOPRAM [Concomitant]
     Active Substance: CITALOPRAM HYDROBROMIDE
     Indication: PAIN
     Dosage: 20 MG, UNK
     Route: 065
     Dates: start: 201007
  6. SPASMOLYT [Concomitant]
     Indication: BLADDER DYSFUNCTION
     Dosage: 5 MG, UNK
     Route: 065
     Dates: start: 201303
  7. DOLO VISANO [Concomitant]
     Indication: PAIN
     Dosage: 750 MG, UNK
     Route: 065
     Dates: start: 201402
  8. FTY [Suspect]
     Active Substance: FINGOLIMOD HYDROCHLORIDE
     Indication: RELAPSING-REMITTING MULTIPLE SCLEROSIS
     Dosage: 0.5 MG, UNK
     Route: 048
     Dates: start: 20140128, end: 20140301
  9. SOLU DECORTIN [Concomitant]
     Active Substance: PREDNISOLONE SODIUM SUCCINATE
     Indication: MULTIPLE SCLEROSIS RELAPSE
     Dosage: 1 MG, UNK
     Route: 065
     Dates: start: 20140224

REACTIONS (2)
  - Hypertensive crisis [Recovered/Resolved]
  - Multiple sclerosis relapse [Recovered/Resolved]

NARRATIVE: CASE EVENT DATE: 20140221
